FAERS Safety Report 10544480 (Version 1)
Quarter: 2014Q4

REPORT INFORMATION
  Report Type: Spontaneous
  Country: US (occurrence: None)
  Receive Date: 20141010
  Receipt Date: 20141010
  Transmission Date: 20150529
  Serious: Yes (Other)
  Sender: FDA-Public Use
  Company Number: 163-POMAL-14063364

PATIENT
  Age: 64 Year
  Sex: Male
  Weight: 99.34 kg

DRUGS (20)
  1. DEXAMETHASONE. [Concomitant]
     Active Substance: DEXAMETHASONE
  2. ONDANSETRON [Concomitant]
     Active Substance: ONDANSETRON
  3. DORZOLAMIDE /TIMOLOL (COSOPT) (EYE DROPS) [Concomitant]
  4. ATORVASTATIN [Concomitant]
     Active Substance: ATORVASTATIN
  5. ZOLPIDEM [Concomitant]
     Active Substance: ZOLPIDEM\ZOLPIDEM TARTRATE
  6. MULTIVITAMINS [Concomitant]
     Active Substance: VITAMINS
  7. PROCHLORPERAZINE. [Concomitant]
     Active Substance: PROCHLORPERAZINE
  8. ALPRAZOLAM. [Concomitant]
     Active Substance: ALPRAZOLAM
  9. PAROXETI NE [Concomitant]
  10. VITAMIN D (ERGOCALCIFEROL) [Concomitant]
     Active Substance: ERGOCALCIFEROL
  11. FISH OIL [Concomitant]
     Active Substance: FISH OIL
  12. FURSOSEMIDE [Concomitant]
  13. POMALYST [Suspect]
     Active Substance: POMALIDOMIDE
     Indication: PLASMA CELL MYELOMA
     Dosage: 4 MG, 21 IN 21 D, PO
     Dates: start: 201312, end: 201403
  14. DOXYCYCLINE. [Concomitant]
     Active Substance: DOXYCYCLINE
  15. AMLODIPINE [Concomitant]
     Active Substance: AMLODIPINE BESYLATE
  16. FAMOTIDINE. [Concomitant]
     Active Substance: FAMOTIDINE
  17. ACYCLOVIR. [Concomitant]
     Active Substance: ACYCLOVIR
  18. SULFAMETHOXAZOLE/ TRIMETHOPRIM (BACTRIM) [Concomitant]
  19. LORATADINE. [Concomitant]
     Active Substance: LORATADINE
  20. METOPROLOL [Concomitant]
     Active Substance: METOPROLOL

REACTIONS (2)
  - Bone marrow failure [None]
  - Plasma cell myeloma [None]
